FAERS Safety Report 8284250-2 (Version None)
Quarter: 2012Q2

REPORT INFORMATION
  Report Type: 
  Country: None (occurrence: None)
  Receive Date: 20120413
  Receipt Date: 20120221
  Transmission Date: 20120825
  Serious: No
  Sender: FDA-Public Use
  Company Number: US-ASTRAZENECA-2009SE11979

PATIENT
  Age: 29598 Day
  Sex: Female

DRUGS (3)
  1. NEXIUM [Suspect]
     Route: 048
  2. NEXIUM [Suspect]
     Route: 048
     Dates: start: 20020101
  3. NEXIUM [Suspect]
     Dosage: IN EMERGENCY SITUATIONS.
     Route: 048
     Dates: start: 20020101

REACTIONS (8)
  - EYE DISORDER [None]
  - ULCER [None]
  - DRUG INEFFECTIVE [None]
  - OSTEOPOROSIS [None]
  - VIRAL INFECTION [None]
  - CATARACT [None]
  - DYSPHAGIA [None]
  - ABDOMINAL DISCOMFORT [None]
